FAERS Safety Report 10377441 (Version 1)
Quarter: 2014Q3

REPORT INFORMATION
  Report Type: Spontaneous
  Country: JP (occurrence: JP)
  Receive Date: 20140812
  Receipt Date: 20140812
  Transmission Date: 20150326
  Serious: Yes (Death)
  Sender: FDA-Public Use
  Company Number: PHHY2013JP160066

PATIENT
  Age: 91 Year
  Sex: Male

DRUGS (1)
  1. EXJADE [Suspect]
     Active Substance: DEFERASIROX
     Indication: PLASMA CELL MYELOMA
     Dosage: 500 MG, (EVERY OTHER DAY)

REACTIONS (2)
  - Death [Fatal]
  - Gastrointestinal disorder [Unknown]
